FAERS Safety Report 7388736-4 (Version None)
Quarter: 2011Q2

REPORT INFORMATION
  Report Type: 
  Country: None (occurrence: None)
  Receive Date: 20110401
  Receipt Date: 20110323
  Transmission Date: 20111010
  Serious: Yes (Hospitalization)
  Sender: FDA-Public Use
  Company Number: FR-JNJFOC-20110310806

PATIENT
  Sex: Female

DRUGS (3)
  1. TRUVADA [Concomitant]
     Indication: HIV INFECTION
  2. PREZISTA [Suspect]
     Indication: HIV INFECTION
     Route: 048
  3. NORVIR [Concomitant]
     Indication: HIV INFECTION

REACTIONS (4)
  - RENAL FAILURE [None]
  - NEPHROLITHIASIS [None]
  - HYPOKALAEMIA [None]
  - RENAL TUBULAR ACIDOSIS [None]
